FAERS Safety Report 17452091 (Version 1)
Quarter: 2020Q1

REPORT INFORMATION
  Report Type: Report from Study
  Country: CA (occurrence: CA)
  Receive Date: 20200224
  Receipt Date: 20200224
  Transmission Date: 20200409
  Serious: Yes (Death, Other)
  Sender: FDA-Public Use
  Company Number: PHHY2018CA138483

PATIENT
  Sex: Female

DRUGS (2)
  1. TYKERB [Suspect]
     Active Substance: LAPATINIB DITOSYLATE
     Indication: BREAST CANCER METASTATIC
     Dosage: 1250 MG, UNK
     Route: 048
     Dates: start: 20180811
  2. TYKERB [Suspect]
     Active Substance: LAPATINIB DITOSYLATE
     Dosage: 1000 MG, QD
     Route: 048

REACTIONS (2)
  - Death [Fatal]
  - Diarrhoea [Not Recovered/Not Resolved]
